FAERS Safety Report 7442227-0 (Version None)
Quarter: 2011Q2

REPORT INFORMATION
  Report Type: 
  Country: None (occurrence: None)
  Receive Date: 20110428
  Receipt Date: 20110426
  Transmission Date: 20111010
  Serious: Yes (Other)
  Sender: FDA-Public Use
  Company Number: VE-PFIZER INC-2011079948

PATIENT
  Age: 65 Year
  Sex: Female

DRUGS (4)
  1. LIPITOR [Suspect]
     Indication: HYPERCHOLESTEROLAEMIA
     Dosage: 40 MG, 1X/DAY
     Route: 048
  2. NEUPOGEN [Concomitant]
     Indication: CHEMOTHERAPY
     Dosage: UNK
     Dates: start: 20110425
  3. DOXORUBICIN [Concomitant]
     Indication: CHEMOTHERAPY
     Dosage: UNK
     Dates: start: 20110425
  4. TRASTUZUMAB [Concomitant]
     Indication: CHEMOTHERAPY
     Dosage: UNK
     Dates: start: 20110425

REACTIONS (2)
  - BONE DISORDER [None]
  - METASTASES TO LUNG [None]
